FAERS Safety Report 22084347 (Version 1)
Quarter: 2023Q1

REPORT INFORMATION
  Report Type: Report from Study
  Country: AR (occurrence: AR)
  Receive Date: 20230310
  Receipt Date: 20230310
  Transmission Date: 20230418
  Serious: Yes (Death, Hospitalization)
  Sender: FDA-Public Use
  Company Number: AR-002147023-NVSC2022AR169686

PATIENT
  Age: 42 Year
  Sex: Female

DRUGS (2)
  1. MEKINIST [Suspect]
     Active Substance: TRAMETINIB DIMETHYL SULFOXIDE
     Indication: Metastatic malignant melanoma
     Dosage: 2 MG, QD (THROUGH THE MOUTH)
     Route: 048
     Dates: start: 20220527, end: 20230306
  2. TAFINLAR [Suspect]
     Active Substance: DABRAFENIB MESYLATE
     Indication: Metastatic malignant melanoma
     Dosage: 300 MG, QD (THROUGH THE MOUTH)
     Route: 048
     Dates: start: 20220527, end: 20230306

REACTIONS (7)
  - Cardiac arrest [Fatal]
  - Gait disturbance [Unknown]
  - Night sweats [Unknown]
  - Pyrexia [Unknown]
  - Depression [Unknown]
  - Abdominal pain [Unknown]
  - Inappropriate schedule of product administration [Unknown]

NARRATIVE: CASE EVENT DATE: 20220527
